FAERS Safety Report 6250799-7 (Version None)
Quarter: 2009Q2

REPORT INFORMATION
  Report Type: 
  Country: None (occurrence: None)
  Receive Date: 20090630
  Receipt Date: 20081107
  Transmission Date: 20091009
  Serious: No
  Sender: FDA-Public Use
  Company Number: US-ABBOTT-08P-163-0489265-00

PATIENT
  Sex: Male
  Weight: 108.05 kg

DRUGS (2)
  1. ZEMPLAR [Suspect]
     Indication: HYPOPARATHYROIDISM
     Dates: start: 20080601
  2. GLIPIZIDE [Concomitant]
     Indication: TYPE 2 DIABETES MELLITUS
     Route: 048

REACTIONS (2)
  - MUSCULAR WEAKNESS [None]
  - SOMNOLENCE [None]
